FAERS Safety Report 9917861 (Version 1)
Quarter: 2014Q1

REPORT INFORMATION
  Report Type: Spontaneous
  Country: US (occurrence: US)
  Receive Date: 20140221
  Receipt Date: 20140221
  Transmission Date: 20141002
  Serious: Yes (Other)
  Sender: FDA-Public Use
  Company Number: US-ABBVIE-14P-163-1200677-00

PATIENT
  Age: 60 Year
  Sex: Female

DRUGS (3)
  1. HUMIRA [Suspect]
     Indication: CROHN^S DISEASE
     Dates: end: 201309
  2. ISONIAZID [Suspect]
     Indication: MYCOBACTERIUM TUBERCULOSIS COMPLEX TEST POSITIVE
     Dosage: UNKNOWN
     Dates: start: 201310, end: 201310
  3. METHOTREXATE [Concomitant]
     Indication: CROHN^S DISEASE
     Dosage: UNKNOWN
     Dates: start: 201309

REACTIONS (2)
  - Drug-induced liver injury [Recovered/Resolved]
  - Tuberculosis [Recovering/Resolving]
